FAERS Safety Report 25726925 (Version 2)
Quarter: 2025Q3

REPORT INFORMATION
  Report Type: Spontaneous
  Country: US (occurrence: US)
  Receive Date: 20250826
  Receipt Date: 20250929
  Transmission Date: 20251020
  Serious: Yes (Other)
  Sender: PFIZER
  Company Number: US-PFIZER INC-202400307260

PATIENT
  Age: 77 Year
  Sex: Female

DRUGS (1)
  1. IBRANCE [Suspect]
     Active Substance: PALBOCICLIB
     Indication: Breast cancer female
     Route: 048

REACTIONS (1)
  - Dyspnoea [Unknown]
